FAERS Safety Report 6756724-4 (Version None)
Quarter: 2010Q2

REPORT INFORMATION
  Report Type: 
  Country: None (occurrence: None)
  Receive Date: 20100604
  Receipt Date: 20100601
  Transmission Date: 20101027
  Serious: Yes (Other)
  Sender: FDA-Public Use
  Company Number: FR-BRISTOL-MYERS SQUIBB COMPANY-15127780

PATIENT
  Age: 39 Year
  Sex: Male

DRUGS (7)
  1. CYCLOPHOSPHAMIDE [Suspect]
     Indication: BURKITT'S LYMPHOMA
  2. DOXORUBICIN HCL [Suspect]
     Indication: BURKITT'S LYMPHOMA
  3. VINCRISTINE [Interacting]
     Indication: BURKITT'S LYMPHOMA
     Dosage: ON DAY 1 AND DAY 8
  4. LOPINAVIR/RITONAVIR [Interacting]
     Indication: HIV INFECTION
     Dosage: 1 DOSAGE FORM=400/100 MG.
  5. METHOTREXATE [Suspect]
     Indication: BURKITT'S LYMPHOMA
  6. CYTARABINE [Suspect]
     Indication: BURKITT'S LYMPHOMA
  7. ABACAVIR SULFATE/LAMIVUDINE [Suspect]
     Indication: HIV INFECTION
     Dosage: 1 DOSAGE FORM=400/100 MG.

REACTIONS (2)
  - DRUG INTERACTION [None]
  - ILEUS PARALYTIC [None]
